FAERS Safety Report 24432765 (Version 3)
Quarter: 2024Q4

REPORT INFORMATION
  Report Type: Spontaneous
  Country: PT (occurrence: PT)
  Receive Date: 20241014
  Receipt Date: 20241122
  Transmission Date: 20250115
  Serious: Yes (Death)
  Sender: MYLAN
  Company Number: PT-MYLANLABS-2024M1092463

PATIENT
  Age: 49 Year
  Sex: Female
  Weight: 90 kg

DRUGS (5)
  1. DEXMEDETOMIDINE HYDROCHLORIDE [Suspect]
     Active Substance: DEXMEDETOMIDINE HYDROCHLORIDE
     Indication: Sedation
     Dosage: 400 UG/50 ML,CONCENTRATE FOR SOLUTION FOR INFUSION
     Route: 042
     Dates: start: 20240926, end: 20240927
  2. TRAMADOL [Concomitant]
     Active Substance: TRAMADOL
     Dosage: UNK
     Route: 065
  3. QUETIAPINE [Concomitant]
     Active Substance: QUETIAPINE
     Dosage: UNK
     Route: 065
  4. CIPROFLOXACIN [Concomitant]
     Active Substance: CIPROFLOXACIN
     Dosage: UNK
     Route: 065
  5. KETOROLAC TROMETHAMINE [Concomitant]
     Active Substance: KETOROLAC TROMETHAMINE
     Dosage: UNK
     Route: 065

REACTIONS (3)
  - Death [Fatal]
  - Hyperthermia malignant [Fatal]
  - Pyrexia [Unknown]

NARRATIVE: CASE EVENT DATE: 20240926
